FAERS Safety Report 5556046-3 (Version None)
Quarter: 2007Q4

REPORT INFORMATION
  Report Type: 
  Country: None (occurrence: None)
  Receive Date: 20071213
  Receipt Date: 20071204
  Transmission Date: 20080405
  Serious: Yes (Death)
  Sender: FDA-Public Use
  Company Number: ZA-GILEAD-2007-0014426

PATIENT
  Sex: Male
  Weight: 42.3 kg

DRUGS (7)
  1. EMTRICITABINE/TENOFOVIR DISOPROXIL FUMARATE [Suspect]
     Indication: HIV INFECTION
     Route: 048
     Dates: start: 20070503, end: 20071107
  2. EFAVIRENZ [Suspect]
     Indication: HIV INFECTION
     Route: 048
     Dates: start: 20070503, end: 20071107
  3. RIFAFOUR [Concomitant]
     Dates: start: 20070412
  4. BACTRIM [Concomitant]
     Dates: start: 20070725, end: 20070821
  5. BACTRIM [Concomitant]
     Dates: start: 20070725, end: 20070821
  6. PYRIDOXINE [Concomitant]
     Dates: start: 20070412
  7. PREDNISONE [Concomitant]
     Dates: start: 20070814

REACTIONS (1)
  - MENINGITIS TUBERCULOUS [None]
